FAERS Safety Report 7312472-3 (Version None)
Quarter: 2011Q1

REPORT INFORMATION
  Report Type: 
  Country: None (occurrence: None)
  Receive Date: 20110214
  Receipt Date: 20110201
  Transmission Date: 20110831
  Serious: Yes (Life-Threatening, Hospitalization, Other)
  Sender: FDA-Public Use
  Company Number: GER/UKI/11/0017110

PATIENT
  Age: 34 Year
  Sex: Male

DRUGS (7)
  1. CO-CODAMOL (PANADEINE CO) [Suspect]
     Indication: PRODUCT USED FOR UNKNOWN INDICATION
  2. CITALOPRAM (CITALOPRAM) [Suspect]
     Indication: PRODUCT USED FOR UNKNOWN INDICATION
     Dosage: 240 MG
  3. AMLODIPINE [Suspect]
     Indication: PRODUCT USED FOR UNKNOWN INDICATION
  4. DIAZEPAM [Suspect]
     Indication: PRODUCT USED FOR UNKNOWN INDICATION
     Dosage: 140 MG
  5. TEMAZEPAM [Suspect]
     Indication: PRODUCT USED FOR UNKNOWN INDICATION
     Dosage: 120 MG
  6. DOXAZOSIN MESYLATE [Suspect]
     Indication: PRODUCT USED FOR UNKNOWN INDICATION
  7. PERINDOPRIL (PERINDOPRIL) [Suspect]
     Indication: PRODUCT USED FOR UNKNOWN INDICATION

REACTIONS (18)
  - DYSARTHRIA [None]
  - LOSS OF CONSCIOUSNESS [None]
  - ACIDOSIS [None]
  - RESPIRATORY DEPRESSION [None]
  - METABOLIC ACIDOSIS [None]
  - BLOOD BICARBONATE DECREASED [None]
  - SOMNOLENCE [None]
  - NYSTAGMUS [None]
  - OVERDOSE [None]
  - SUICIDE ATTEMPT [None]
  - HYPOTENSION [None]
  - MULTIPLE DRUG OVERDOSE INTENTIONAL [None]
  - CRYSTALLURIA [None]
  - TOXICITY TO VARIOUS AGENTS [None]
  - ATAXIA [None]
  - COMA [None]
  - HYPOXIA [None]
  - BLOOD POTASSIUM DECREASED [None]
